FAERS Safety Report 8102308-5 (Version None)
Quarter: 2012Q1

REPORT INFORMATION
  Report Type: 
  Country: None (occurrence: None)
  Receive Date: 20120201
  Receipt Date: 20120126
  Transmission Date: 20120608
  Serious: No
  Sender: FDA-Public Use
  Company Number: US-PFIZER INC-2011300759

PATIENT
  Sex: Female
  Weight: 112.47 kg

DRUGS (16)
  1. WARFARIN [Concomitant]
     Indication: SURGERY
     Dosage: 1-7 PILLLS, PM
  2. VITAMIN B-12 [Concomitant]
     Dosage: 500 1-AM
  3. SYNTHROID [Concomitant]
     Indication: RADIATION THYROIDITIS
  4. ASCORBIC ACID [Concomitant]
     Dosage: 1000 MG, 1-AM
  5. GARLIC [Concomitant]
     Dosage: 1000, 1-PM
  6. VITAMIN D [Concomitant]
     Dosage: 2000, 1-AM
  7. ACETYLSALICYLIC ACID [Concomitant]
     Dosage: UNK
  8. SYNTHROID [Concomitant]
     Indication: BASEDOW'S DISEASE
     Dosage: 225 UG, 1-AM
  9. GLUCOSAMINE W/CHONDROITIN SULFATES [Concomitant]
     Dosage: 600 560 1-AM 1-PM
  10. LYRICA [Suspect]
     Dosage: UNK
  11. TETRACYCLINE HYDROCHLORIDE [Suspect]
     Dosage: UNK
  12. LEXAPRO [Concomitant]
     Indication: FIBROMYALGIA
     Dosage: 20 MG,  1-AM
  13. TRAZODONE [Concomitant]
     Indication: FIBROMYALGIA
     Dosage: 50 MG,  1-PM
  14. BUPROPION [Concomitant]
     Indication: DEPRESSION
     Dosage: 150, 2X/DAY
  15. VITAMIN E [Concomitant]
     Dosage: 190
  16. PRILOSEC [Concomitant]
     Dosage: 1:AM

REACTIONS (11)
  - WRONG DRUG ADMINISTERED [None]
  - DISSOCIATION [None]
  - POST PROCEDURAL SWELLING [None]
  - MEMORY IMPAIRMENT [None]
  - DRUG INTERACTION [None]
  - ARTHRALGIA [None]
  - RASH GENERALISED [None]
  - MYALGIA [None]
  - DRUG DISPENSING ERROR [None]
  - DEPRESSION [None]
  - PROCEDURAL PAIN [None]
